FAERS Safety Report 13227945 (Version 2)
Quarter: 2018Q1

REPORT INFORMATION
  Report Type: Spontaneous
  Country: IT (occurrence: IT)
  Receive Date: 20170213
  Receipt Date: 20180313
  Transmission Date: 20180508
  Serious: Yes (Other)
  Sender: FDA-Public Use
  Company Number: PHHY2017IT019080

PATIENT
  Age: 61 Year
  Sex: Male

DRUGS (4)
  1. PANITUMUMAB [Suspect]
     Active Substance: PANITUMUMAB
     Indication: COLON NEOPLASM
     Dosage: 500 MG, CYCLIC
     Route: 042
     Dates: start: 20170123, end: 20170125
  2. 5 FLUOROURACIL [Suspect]
     Active Substance: FLUOROURACIL
     Indication: COLON NEOPLASM
     Dosage: 1800 MG, CYCLIC
     Route: 042
     Dates: start: 20170123, end: 20170125
  3. OXALIPLATIN. [Suspect]
     Active Substance: OXALIPLATIN
     Indication: COLON NEOPLASM
     Dosage: 160 MG, CYCLIC
     Route: 042
     Dates: start: 20170123, end: 20170125
  4. CALCIUM LEVOFOLINATE [Suspect]
     Active Substance: LEVOLEUCOVORIN CALCIUM
     Indication: COLON NEOPLASM
     Dosage: 190 MG, CYCLIC
     Route: 042

REACTIONS (2)
  - Skin lesion [Not Recovered/Not Resolved]
  - Folliculitis [Not Recovered/Not Resolved]

NARRATIVE: CASE EVENT DATE: 20170201
